FAERS Safety Report 7160192-0 (Version None)
Quarter: 2010Q4

REPORT INFORMATION
  Report Type: 
  Country: None (occurrence: None)
  Receive Date: 20101214
  Receipt Date: 20091130
  Transmission Date: 20110411
  Serious: No
  Sender: FDA-Public Use
  Company Number: US-AMGEN-KDL377290

PATIENT

DRUGS (20)
  1. ENBREL [Suspect]
     Indication: PRODUCT USED FOR UNKNOWN INDICATION
     Dosage: 50 MG, QWK
     Route: 058
  2. ALENDRONATE SODIUM [Concomitant]
     Dosage: 35 MG, UNK
  3. PANTOPRAZOLE SODIUM [Concomitant]
     Dosage: 40 MG, UNK
  4. AMLODIPINE BESYLATE [Concomitant]
     Dosage: 5 MG, UNK
  5. PREGABALIN [Concomitant]
     Dosage: 150 MG, UNK
  6. LEVOTHYROXINE SODIUM [Concomitant]
     Dosage: 175 A?G, UNK
  7. TRAZODONE [Concomitant]
     Dosage: 100 MG, UNK
  8. FOLIC ACID [Concomitant]
     Dosage: 1 MG, UNK
  9. HYDROCORTISONE [Concomitant]
     Dosage: 20 MG, UNK
  10. POTASSIUM CHLORIDE [Concomitant]
     Dosage: UNK UNK, UNK
  11. FLUOXETINE HYDROCHLORIDE [Concomitant]
     Dosage: 20 MG, UNK
  12. OXYCODONE [Concomitant]
     Dosage: 5 MG, UNK
  13. MILNACIPRAN [Concomitant]
     Dosage: 100 MG, UNK
  14. PREDNISONE [Concomitant]
     Dosage: 10 MG, UNK
  15. METHOTREXATE [Concomitant]
     Dosage: 50 MG, UNK
  16. LIDODERM [Concomitant]
     Dosage: UNK UNK, UNK
  17. SENNA [Concomitant]
     Dosage: 8.6 MG, UNK
  18. ERGOCALCIFEROL [Concomitant]
     Dosage: UNK UNK, UNK
  19. OXYCODONE HYDROCHLORIDE [Concomitant]
     Dosage: 20 MG, UNK
  20. VITAMIN B COMPLEX [Concomitant]
     Dosage: UNK UNK, UNK

REACTIONS (4)
  - GAIT DISTURBANCE [None]
  - GRIP STRENGTH DECREASED [None]
  - HEADACHE [None]
  - TREMOR [None]
